FAERS Safety Report 12853287 (Version 4)
Quarter: 2017Q1

REPORT INFORMATION
  Report Type: Spontaneous
  Country: JP (occurrence: JP)
  Receive Date: 20161017
  Receipt Date: 20170316
  Transmission Date: 20170428
  Serious: Yes (Other)
  Sender: FDA-Public Use
  Company Number: JP-PFIZER INC-2016478960

PATIENT
  Age: 78 Year
  Sex: Male

DRUGS (7)
  1. LYRICA [Suspect]
     Active Substance: PREGABALIN
     Indication: LUMBAR SPINAL STENOSIS
     Dosage: 25 MG, 1X/DAY
     Route: 048
     Dates: start: 20161005, end: 20161012
  2. SELBEX [Concomitant]
     Active Substance: TEPRENONE
     Dosage: UNK
     Route: 048
  3. CONIEL [Concomitant]
     Active Substance: BENIDIPINE HYDROCHLORIDE
     Dosage: UNK
  4. CELECOX [Suspect]
     Active Substance: CELECOXIB
     Indication: LUMBAR SPINAL STENOSIS
     Dosage: 100 MG, 2X/DAY
     Route: 048
     Dates: start: 20160921, end: 20161012
  5. DEPAS [Concomitant]
     Active Substance: ETIZOLAM
     Dosage: UNK
  6. MECOBALAMIN [Suspect]
     Active Substance: METHYLCOBALAMIN
     Indication: LUMBAR SPINAL STENOSIS
     Dosage: 500 UG, 3X/DAY
     Route: 048
     Dates: start: 20160201, end: 20160902
  7. OPALMON [Suspect]
     Active Substance: LIMAPROST
     Indication: LUMBAR SPINAL STENOSIS
     Dosage: 5 UG, 3X/DAY
     Route: 048
     Dates: start: 20160201, end: 20161012

REACTIONS (3)
  - Conjunctivitis [Unknown]
  - Toxic skin eruption [Recovering/Resolving]
  - Face oedema [Recovering/Resolving]

NARRATIVE: CASE EVENT DATE: 20161011
